FAERS Safety Report 6371567-1 (Version None)
Quarter: 2009Q3

REPORT INFORMATION
  Report Type: 
  Country: None (occurrence: None)
  Receive Date: 20090923
  Receipt Date: 20080421
  Transmission Date: 20100115
  Serious: No
  Sender: FDA-Public Use
  Company Number: US-ASTRAZENECA-2007UW15851

PATIENT
  Age: 36 Year
  Sex: Male
  Weight: 71.7 kg

DRUGS (7)
  1. SEROQUEL [Suspect]
     Indication: BIPOLAR DISORDER
     Dosage: 100 MG - 900 MG
     Route: 048
     Dates: start: 20030101, end: 20040101
  2. SEROQUEL [Suspect]
     Indication: DEPRESSION
     Dosage: 100 MG - 900 MG
     Route: 048
     Dates: start: 20030101, end: 20040101
  3. RISPERDAL [Concomitant]
  4. XANAX [Concomitant]
  5. PROZAC [Concomitant]
  6. LITHIUM [Concomitant]
     Dates: start: 20030101, end: 20040101
  7. CELEXA [Concomitant]

REACTIONS (3)
  - GLUCOSE TOLERANCE IMPAIRED [None]
  - OBESITY [None]
  - TYPE 2 DIABETES MELLITUS [None]
